FAERS Safety Report 20740646 (Version 1)
Quarter: 2022Q2

REPORT INFORMATION
  Report Type: Spontaneous
  Country: US (occurrence: None)
  Receive Date: 20220421
  Receipt Date: 20220421
  Transmission Date: 20220721
  Serious: Yes (Disabling, Other)
  Sender: FDA-Public Use
  Company Number: None

PATIENT
  Age: 32 Year
  Sex: Female
  Weight: 65.25 kg

DRUGS (1)
  1. BUPRENORPHINE\NALOXONE [Suspect]
     Active Substance: BUPRENORPHINE\NALOXONE
     Indication: Pain management
     Dosage: OTHER QUANTITY : 2 TABLET(S);?FREQUENCY : TWICE A DAY;?
     Route: 060

REACTIONS (7)
  - Tooth disorder [None]
  - Tooth loss [None]
  - Dental caries [None]
  - Therapeutic product effect decreased [None]
  - Feeling abnormal [None]
  - Feeling abnormal [None]
  - Depressed mood [None]

NARRATIVE: CASE EVENT DATE: 20190101
